FAERS Safety Report 5568868-3 (Version None)
Quarter: 2007Q4

REPORT INFORMATION
  Report Type: 
  Country: None (occurrence: None)
  Receive Date: 20071220
  Receipt Date: 20070220
  Transmission Date: 20080405
  Serious: No
  Sender: FDA-Public Use
  Company Number: A0640283A

PATIENT
  Age: 68 Year
  Sex: Male

DRUGS (6)
  1. AVODART [Suspect]
     Dosage: .5MG PER DAY
     Route: 048
     Dates: start: 20061229, end: 20061230
  2. OMEPRAZOLE [Concomitant]
  3. NORVASC [Concomitant]
  4. AVALIDE [Concomitant]
  5. MIRAPEX [Concomitant]
  6. RHINOCORT [Concomitant]

REACTIONS (1)
  - CHEST PAIN [None]
